FAERS Safety Report 25636732 (Version 3)
Quarter: 2025Q3

REPORT INFORMATION
  Report Type: Spontaneous
  Country: US (occurrence: US)
  Receive Date: 20250804
  Receipt Date: 20250814
  Transmission Date: 20251020
  Serious: No
  Sender: Haleon PLC
  Company Number: US-HALEON-2255778

PATIENT
  Age: 60 Year
  Sex: Male

DRUGS (1)
  1. FLONASE ALLERGY RELIEF [Suspect]
     Active Substance: FLUTICASONE PROPIONATE
     Indication: Hypersensitivity
     Dates: start: 20250727, end: 20250731

REACTIONS (3)
  - Oropharyngeal pain [Unknown]
  - Drug ineffective [Unknown]
  - Nasal discomfort [Unknown]
